FAERS Safety Report 6880213-X (Version None)
Quarter: 2010Q3

REPORT INFORMATION
  Report Type: 
  Country: None (occurrence: None)
  Receive Date: 20100728
  Receipt Date: 20100716
  Transmission Date: 20110219
  Serious: Yes (Hospitalization)
  Sender: FDA-Public Use
  Company Number: JP-SANOFI-AVENTIS-2010SA041657

PATIENT
  Age: 74 Year
  Sex: Male

DRUGS (16)
  1. ELPLAT [Suspect]
     Indication: COLON CANCER METASTATIC
     Route: 042
     Dates: start: 20090811, end: 20090811
  2. ELPLAT [Suspect]
     Route: 042
     Dates: start: 20091201, end: 20091201
  3. AVASTIN [Suspect]
     Indication: COLON CANCER METASTATIC
     Route: 041
     Dates: start: 20090811, end: 20090811
  4. AVASTIN [Suspect]
     Route: 041
     Dates: start: 20091019, end: 20091019
  5. FLUOROURACIL [Concomitant]
     Dates: start: 20090811, end: 20090811
  6. FLUOROURACIL [Concomitant]
     Dates: start: 20091201, end: 20091201
  7. CALCIUM LEVOFOLINATE [Concomitant]
     Dates: start: 20090811, end: 20090811
  8. CALCIUM LEVOFOLINATE [Concomitant]
     Dates: start: 20091201, end: 20091201
  9. ASPIRIN [Concomitant]
  10. ADALAT [Concomitant]
  11. MAINTATE [Concomitant]
  12. TAKEPRON [Concomitant]
  13. LIPITOR [Concomitant]
  14. ALLOPURINOL [Concomitant]
  15. DEPAS [Concomitant]
     Dates: start: 20090731, end: 20091215
  16. MEILAX [Concomitant]
     Dates: start: 20090901, end: 20091215

REACTIONS (3)
  - INCISIONAL HERNIA [None]
  - NEUROPATHY PERIPHERAL [None]
  - POST PROCEDURAL BILE LEAK [None]
